FAERS Safety Report 13953096 (Version 2)
Quarter: 2017Q3

REPORT INFORMATION
  Report Type: Report from Study
  Country: US (occurrence: US)
  Receive Date: 20170911
  Receipt Date: 20170918
  Transmission Date: 20171128
  Serious: No
  Sender: FDA-Public Use
  Company Number: US-AMGEN-USASP2017135813

PATIENT
  Age: 76 Year
  Sex: Female

DRUGS (2)
  1. ENBREL [Suspect]
     Active Substance: ETANERCEPT
     Indication: RHEUMATOID ARTHRITIS
  2. ENBREL [Suspect]
     Active Substance: ETANERCEPT
     Indication: OSTEOARTHRITIS
     Dosage: 50 MG, QWK
     Route: 065

REACTIONS (11)
  - Malaise [Recovering/Resolving]
  - Hand deformity [Unknown]
  - Injection site bruising [Unknown]
  - Weight decreased [Unknown]
  - Adverse drug reaction [Unknown]
  - Dizziness [Recovered/Resolved]
  - Wrong technique in product usage process [Unknown]
  - Decreased appetite [Unknown]
  - Hyperhidrosis [Recovered/Resolved]
  - Off label use [Unknown]
  - Chills [Unknown]
